FAERS Safety Report 9643879 (Version 1)
Quarter: 2013Q4

REPORT INFORMATION
  Report Type: Spontaneous
  Country: CN (occurrence: None)
  Receive Date: 20131023
  Receipt Date: 20131023
  Transmission Date: 20140711
  Serious: Yes (Other)
  Sender: FDA-Public Use
  Company Number: PRED20130069

PATIENT
  Age: 66 Year
  Sex: Male

DRUGS (3)
  1. PREDNISONE TABLETS (PREDNISONE) (UNKNOWN) (PREDNISONE) [Suspect]
     Indication: LANGERHANS^ CELL HISTIOCYTOSIS
     Dosage: SIX CYCLES
  2. CYCLOPHOSPHAMIDE (CYCLOPHOSPHAMIDE) (UNKNOWN) (CYCLOPHOSAPHAMIDE) [Suspect]
     Indication: LANGERHANS^ CELL HISTIOCYTOSIS
     Dosage: SIX CYCLE
  3. VINCRISTINE (VINCRISTINE) (VINCRISTINE) [Suspect]
     Indication: LANGERHANS^ CELL HISTIOCYTOSIS
     Dosage: SIX CYCLES

REACTIONS (5)
  - Pneumonitis [None]
  - Pleural effusion [None]
  - Splenomegaly [None]
  - Respiratory failure [None]
  - Immunosuppression [None]
